FAERS Safety Report 5893347-3 (Version None)
Quarter: 2008Q3

REPORT INFORMATION
  Report Type: 
  Country: None (occurrence: None)
  Receive Date: 20080922
  Receipt Date: 20080922
  Transmission Date: 20090109
  Serious: No
  Sender: FDA-Public Use
  Company Number: None

PATIENT
  Age: 57 Year
  Sex: Male
  Weight: 83.9154 kg

DRUGS (1)
  1. CELEXA [Suspect]
     Indication: DEPRESSION
     Dosage: 40 MG ONCE DAILY PO  (DURATION: SEVERAL YEARS)
     Route: 048

REACTIONS (8)
  - ABDOMINAL DISCOMFORT [None]
  - AGITATION [None]
  - DRUG DEPENDENCE [None]
  - HEART RATE INCREASED [None]
  - INSOMNIA [None]
  - PAIN [None]
  - PARAESTHESIA [None]
  - POOR QUALITY SLEEP [None]
